FAERS Safety Report 12084572 (Version 1)
Quarter: 2016Q1

REPORT INFORMATION
  Report Type: Spontaneous
  Country: US (occurrence: US)
  Receive Date: 20160217
  Receipt Date: 20160217
  Transmission Date: 20160526
  Serious: Yes (Other)
  Sender: FDA-Public Use
  Company Number: US-VERNALIS THERAPEUTICS, INC.-2015VRN00001

PATIENT
  Age: 54 Year
  Sex: Female
  Weight: 72.11 kg

DRUGS (2)
  1. TUZISTRA XR [Suspect]
     Active Substance: CHLORPHENIRAMINE MALEATE\CODEINE PHOSPHATE ANHYDROUS
     Indication: COUGH
     Dosage: 2 TSP, ONCE
     Route: 048
     Dates: start: 20151103, end: 20151103
  2. LEVOFLOXACIN. [Concomitant]
     Active Substance: LEVOFLOXACIN
     Indication: COUGH
     Dosage: UNK
     Dates: start: 20151104

REACTIONS (9)
  - Panic reaction [Recovered/Resolved]
  - Dysphagia [Recovered/Resolved]
  - Saliva altered [Recovered/Resolved]
  - Restlessness [Recovered/Resolved]
  - Oropharyngeal pain [Recovered/Resolved]
  - Feeling abnormal [Recovered/Resolved]
  - Insomnia [Recovered/Resolved]
  - Dyspnoea [Recovered/Resolved]
  - Heart sounds abnormal [Recovered/Resolved]

NARRATIVE: CASE EVENT DATE: 20151103
